FAERS Safety Report 25308006 (Version 1)
Quarter: 2025Q2

REPORT INFORMATION
  Report Type: Spontaneous
  Country: US (occurrence: US)
  Receive Date: 20250513
  Receipt Date: 20250513
  Transmission Date: 20250717
  Serious: No
  Sender: GALPHARM INTERNATIONAL
  Company Number: US-PERRIGO-24US005951

PATIENT
  Age: 34 Year
  Sex: Female
  Weight: 43.537 kg

DRUGS (1)
  1. MICONAZOLE 3 COMBINATION PACK [Suspect]
     Active Substance: MICONAZOLE NITRATE
     Indication: Vulvovaginal mycotic infection
     Route: 067
     Dates: start: 20240618, end: 20240618

REACTIONS (3)
  - Dysuria [Unknown]
  - Vulvovaginal discomfort [Unknown]
  - Vulvovaginal swelling [Unknown]

NARRATIVE: CASE EVENT DATE: 20240618
